FAERS Safety Report 14392274 (Version 3)
Quarter: 2018Q1

REPORT INFORMATION
  Report Type: Spontaneous
  Country: US (occurrence: US)
  Receive Date: 20180116
  Receipt Date: 20180119
  Transmission Date: 20180509
  Serious: Yes (Other)
  Sender: FDA-Public Use
  Company Number: US-PFIZER INC-2018017174

PATIENT
  Age: 64 Year
  Sex: Male
  Weight: 64.85 kg

DRUGS (1)
  1. IBRANCE [Suspect]
     Active Substance: PALBOCICLIB
     Indication: OESOPHAGEAL CANCER METASTATIC
     Dosage: 125 MG, CYCLIC (D1-21 Q28 DAYS/DAYS1-21OF 28 DAYS)
     Route: 048
     Dates: start: 20171222, end: 20180110

REACTIONS (6)
  - Platelet count decreased [Unknown]
  - Epistaxis [Unknown]
  - Product use in unapproved indication [Unknown]
  - White blood cell count decreased [Recovering/Resolving]
  - Dyspnoea [Unknown]
  - Fatigue [Unknown]

NARRATIVE: CASE EVENT DATE: 20171222
